FAERS Safety Report 8842447 (Version 2)
Quarter: 2013Q1

REPORT INFORMATION
  Report Type: Spontaneous
  Country: US (occurrence: US)
  Receive Date: 20121016
  Receipt Date: 20130108
  Transmission Date: 20140127
  Serious: Yes (Hospitalization, Other)
  Sender: FDA-Public Use
  Company Number: US-ARROW-2012-17343

PATIENT
  Age: 58 None
  Sex: Male
  Weight: 83 kg

DRUGS (4)
  1. GABAPENTIN [Suspect]
     Indication: NEUROPATHY PERIPHERAL
     Dosage: UNK
     Route: 065
     Dates: start: 201209, end: 201209
  2. HYDROCODONE BITARTATE AND ACETAMINOPHEN [Suspect]
     Indication: NEUROPATHY PERIPHERAL
     Dosage: 2 TABLETS, Q3HPRN
     Route: 048
     Dates: start: 201209
  3. LYRICA [Suspect]
     Indication: NEUROPATHY PERIPHERAL
     Dosage: UNK
     Route: 065
  4. DILAUDID [Concomitant]
     Indication: PAIN
     Dosage: 4MG, 1 TABLET QID
     Route: 048
     Dates: start: 201209

REACTIONS (21)
  - Suicidal ideation [Recovered/Resolved]
  - Hallucinations, mixed [Recovering/Resolving]
  - Mood swings [Recovering/Resolving]
  - Disorientation [Recovered/Resolved]
  - Abnormal dreams [Not Recovered/Not Resolved]
  - Hemiparesis [Not Recovered/Not Resolved]
  - Neck pain [Not Recovered/Not Resolved]
  - Anorectal discomfort [Recovering/Resolving]
  - Blister [Recovering/Resolving]
  - Rash [Recovering/Resolving]
  - Feeling abnormal [Recovered/Resolved]
  - Tremor [Not Recovered/Not Resolved]
  - Unevaluable event [Not Recovered/Not Resolved]
  - Anxiety [Recovering/Resolving]
  - Depression [Recovering/Resolving]
  - Mental impairment [Recovering/Resolving]
  - Cardiac disorder [Not Recovered/Not Resolved]
  - Crohn^s disease [Not Recovered/Not Resolved]
  - Loss of consciousness [Recovered/Resolved]
  - Memory impairment [Not Recovered/Not Resolved]
  - Choking [Not Recovered/Not Resolved]
